FAERS Safety Report 7155308-6 (Version None)
Quarter: 2010Q4

REPORT INFORMATION
  Report Type: 
  Country: None (occurrence: None)
  Receive Date: 20101214
  Receipt Date: 20091111
  Transmission Date: 20110411
  Serious: Yes (Other)
  Sender: FDA-Public Use
  Company Number: US-AMGEN-QUU366134

PATIENT

DRUGS (6)
  1. ENBREL [Suspect]
     Indication: PRODUCT USED FOR UNKNOWN INDICATION
     Dosage: 50 MG, UNK
     Dates: start: 20070101, end: 20090827
  2. UNSPECIFIED MEDICATION [Suspect]
  3. METHOTREXATE [Concomitant]
     Dosage: UNK UNK, UNK
     Route: 048
     Dates: start: 20061201
  4. SULFADIAZINE [Concomitant]
     Dosage: UNK UNK, UNK
     Dates: start: 20061201
  5. FOLIC ACID [Concomitant]
     Dosage: UNK UNK, UNK
     Dates: start: 20060101
  6. PREDNISONE [Concomitant]
     Dosage: 40 MG, UNK
     Dates: start: 20090922

REACTIONS (1)
  - PULMONARY TUBERCULOSIS [None]
